FAERS Safety Report 9544020 (Version 2)
Quarter: 2013Q3

REPORT INFORMATION
  Report Type: Spontaneous
  Country: PL (occurrence: PL)
  Receive Date: 20130923
  Receipt Date: 20130923
  Transmission Date: 20140515
  Serious: Yes (Hospitalization)
  Sender: FDA-Public Use
  Company Number: PL-009507513-1212POL006773

PATIENT
  Age: 72 Year
  Sex: Female
  Weight: 93 kg

DRUGS (4)
  1. DIPROPHOS [Suspect]
     Indication: OSTEOARTHRITIS
     Dosage: 6.43 MG + 2.63 MG/ML, ONE DOSE
     Route: 014
     Dates: start: 20121213
  2. INSULIN [Concomitant]
     Indication: TYPE 2 DIABETES MELLITUS
     Dosage: INJECTION
     Dates: start: 2002
  3. TULIP (ATORVASTATIN CALCIUM) [Concomitant]
     Indication: HYPERCHOLESTEROLAEMIA
     Dosage: 20 MG, QD
     Route: 048
     Dates: start: 2009
  4. TRITACE [Concomitant]
     Indication: HYPERTENSION
     Route: 048

REACTIONS (4)
  - Blood pressure increased [Recovered/Resolved]
  - Blood glucose increased [Recovered/Resolved]
  - Troponin increased [Recovered/Resolved]
  - Medication error [Unknown]
